FAERS Safety Report 5766888-7 (Version None)
Quarter: 2008Q2

REPORT INFORMATION
  Report Type: 
  Country: None (occurrence: None)
  Receive Date: 20080609
  Receipt Date: 20080523
  Transmission Date: 20081010
  Serious: Yes (Other)
  Sender: FDA-Public Use
  Company Number: GXKR2008BE04730

PATIENT
  Age: 73 Year
  Sex: Female

DRUGS (5)
  1. ACETYLSALICYLIC ACID SRT [Suspect]
     Dosage: 250 MG, INTRAVENOUS,100 MG ORAL
     Route: 042
  2. TICLOPIDINE HCL [Suspect]
     Dosage: 250 MG, ORAL
     Route: 048
  3. ENOXAPARIN SODIUM [Suspect]
     Dosage: 40 MG, SUBCUTANEOUS
     Route: 058
  4. BUPIVACAINE [Concomitant]
  5. SUFENTANIL (SUFENTANIL) INTRATHECAL INFUSION [Concomitant]

REACTIONS (5)
  - NAUSEA [None]
  - SPINAL HAEMATOMA [None]
  - STUPOR [None]
  - SUBARACHNOID HAEMORRHAGE [None]
  - VOMITING [None]
